FAERS Safety Report 20035350 (Version 2)
Quarter: 2021Q4

REPORT INFORMATION
  Report Type: Spontaneous
  Country: US (occurrence: US)
  Receive Date: 20211104
  Receipt Date: 20211117
  Transmission Date: 20220303
  Serious: Yes (Hospitalization)
  Sender: FDA-Public Use
  Company Number: US-TEVA-2021-US-1972562

PATIENT
  Age: 38 Year
  Sex: Female

DRUGS (2)
  1. DIVALPROEX SODIUM [Suspect]
     Active Substance: DIVALPROEX SODIUM
     Indication: Seizure
     Dosage: SIXTY 500 MG DR TABLETS
     Route: 048
  2. LEVETIRACETAM [Suspect]
     Active Substance: LEVETIRACETAM
     Indication: Seizure
     Dosage: SIXTY 750 MG TABLETS
     Route: 048

REACTIONS (5)
  - Hyperammonaemia [Unknown]
  - Somnolence [Unknown]
  - Hypotension [Unknown]
  - Intentional overdose [Unknown]
  - Toxicity to various agents [Unknown]
